FAERS Safety Report 8612089-4 (Version None)
Quarter: 2012Q3

REPORT INFORMATION
  Report Type: 
  Country: None (occurrence: None)
  Receive Date: 20120822
  Receipt Date: 20120813
  Transmission Date: 20120928
  Serious: Yes (Other)
  Sender: FDA-Public Use
  Company Number: NL-ABBOTT-12P-114-0963912-00

PATIENT
  Sex: Female

DRUGS (1)
  1. HUMIRA [Suspect]
     Indication: RHEUMATOID ARTHRITIS
     Route: 058
     Dates: start: 20120315, end: 20120807

REACTIONS (6)
  - MALAISE [None]
  - INJECTION SITE SWELLING [None]
  - PALMAR-PLANTAR ERYTHRODYSAESTHESIA SYNDROME [None]
  - URTICARIA [None]
  - HYPERSENSITIVITY [None]
  - INJECTION SITE ERYTHEMA [None]
